FAERS Safety Report 5904595-8 (Version None)
Quarter: 2008Q4

REPORT INFORMATION
  Report Type: 
  Country: None (occurrence: None)
  Receive Date: 20081001
  Receipt Date: 20080916
  Transmission Date: 20090506
  Serious: Yes (Disabling)
  Sender: FDA-Public Use
  Company Number: JP-GENENTECH-268560

PATIENT
  Sex: Male
  Weight: 54 kg

DRUGS (8)
  1. AVASTIN [Suspect]
     Indication: RECTAL CANCER RECURRENT
     Dosage: 5 MG/KG, UNK
     Route: 042
     Dates: start: 20070730
  2. IRINOTECAN HCL [Suspect]
     Indication: RECTAL CANCER RECURRENT
     Dosage: 100 MG/M2, UNK
     Route: 042
     Dates: start: 20070730, end: 20080109
  3. FLUOROURACIL [Suspect]
     Indication: RECTAL CANCER RECURRENT
     Dosage: 400 MG/M2, UNK
     Dates: start: 20070730
  4. LEUCOVORIN CALCIUM [Concomitant]
     Indication: DRUG USE FOR UNKNOWN INDICATION
     Dosage: UNK
     Dates: start: 20070730, end: 20080109
  5. KYTRIL [Concomitant]
     Indication: DRUG USE FOR UNKNOWN INDICATION
     Dosage: UNK
     Dates: start: 20070731, end: 20080109
  6. DECADRON [Concomitant]
     Indication: DRUG USE FOR UNKNOWN INDICATION
     Dosage: UNK
     Dates: start: 20070730, end: 20080109
  7. RABEPRAZOLE SODIUM [Concomitant]
     Indication: DRUG USE FOR UNKNOWN INDICATION
     Dosage: UNK
     Dates: end: 20080829
  8. LAXOBERON [Concomitant]
     Indication: DRUG USE FOR UNKNOWN INDICATION

REACTIONS (1)
  - PEPTIC ULCER [None]
